FAERS Safety Report 17919378 (Version 4)
Quarter: 2020Q3

REPORT INFORMATION
  Report Type: Report from Study
  Country: IT (occurrence: IT)
  Receive Date: 20200619
  Receipt Date: 20200716
  Transmission Date: 20201103
  Serious: Yes (Hospitalization)
  Sender: FDA-Public Use
  Company Number: IT-TAKEDA-2020TUS027174

PATIENT
  Sex: Male

DRUGS (6)
  1. BORTEZOMIB. [Suspect]
     Active Substance: BORTEZOMIB
     Indication: MANTLE CELL LYMPHOMA
     Dosage: 2.54 MILLIGRAM, QD
     Route: 058
     Dates: start: 20200121, end: 20200327
  2. DUTASTERIDE. [Concomitant]
     Active Substance: DUTASTERIDE
     Dosage: 0.5 MILLIGRAM, QD
     Route: 048
     Dates: start: 20200121
  3. IBRUTINIB [Suspect]
     Active Substance: IBRUTINIB
     Indication: MANTLE CELL LYMPHOMA
     Dosage: 560 MILLIGRAM, QD
     Route: 048
     Dates: start: 20200121, end: 20200608
  4. PANTOPRAZOL [Concomitant]
     Active Substance: PANTOPRAZOLE SODIUM
     Dosage: 20 MILLIGRAM, QD
     Route: 048
     Dates: start: 20200121
  5. ACICLOVIR [Concomitant]
     Active Substance: ACYCLOVIR
     Dosage: 400 MILLIGRAM
     Route: 048
     Dates: start: 20200121
  6. TAMSULOSIN [Concomitant]
     Active Substance: TAMSULOSIN
     Dosage: 0.4 MILLIGRAM, QD
     Route: 048
     Dates: start: 20200121

REACTIONS (3)
  - Splenic artery embolisation [Recovered/Resolved]
  - General physical health deterioration [Recovered/Resolved]
  - Aneurysm repair [Recovered/Resolved]

NARRATIVE: CASE EVENT DATE: 20200608
